FAERS Safety Report 8965022 (Version 1)
Quarter: 2012Q4

REPORT INFORMATION
  Report Type: 
  Country: BR (occurrence: BR)
  Receive Date: 20121214
  Receipt Date: 20121214
  Transmission Date: 20130627
  Serious: Yes (Life-Threatening, Hospitalization, Other)
  Sender: FDA-Public Use
  Company Number: PHHO2012BR017866

PATIENT
  Age: 69 Year
  Sex: Male

DRUGS (3)
  1. CICLOSPORIN [Suspect]
     Indication: RENAL TRANSPLANT
     Dosage: 150 mg, QD
     Dates: start: 20110510, end: 20121031
  2. MYCOPHENOLATE MOFETIL [Suspect]
     Indication: RENAL TRANSPLANT
     Dosage: UNK
     Dates: start: 20070512
  3. PREDNISONE [Suspect]
     Dosage: UNK
     Dates: start: 20070514

REACTIONS (3)
  - Coronary artery disease [Recovered/Resolved]
  - Acute pulmonary oedema [Recovered/Resolved]
  - Renal impairment [Recovered/Resolved]
